FAERS Safety Report 15706926 (Version 1)
Quarter: 2018Q4

REPORT INFORMATION
  Report Type: Spontaneous
  Country: US (occurrence: US)
  Receive Date: 20181210
  Receipt Date: 20181210
  Transmission Date: 20190205
  Serious: Yes (Other)
  Sender: FDA-Public Use
  Company Number: US-GLAXOSMITHKLINE-US2018221095

PATIENT
  Sex: Female

DRUGS (1)
  1. VENTOLIN HFA [Suspect]
     Active Substance: ALBUTEROL SULFATE
     Indication: ASTHMA
     Dosage: UNK UNK, U

REACTIONS (6)
  - Heart rate increased [Unknown]
  - Feeling cold [Unknown]
  - Product dose omission [Unknown]
  - Choking [Unknown]
  - Wrong technique in product usage process [Unknown]
  - Dyspnoea [Unknown]
